FAERS Safety Report 24276237 (Version 1)
Quarter: 2024Q3

REPORT INFORMATION
  Report Type: Spontaneous
  Country: NL (occurrence: NL)
  Receive Date: 20240903
  Receipt Date: 20240903
  Transmission Date: 20241016
  Serious: Yes (Other)
  Sender: TEVA
  Company Number: None

PATIENT
  Age: 54 Year
  Sex: Male
  Weight: 86.2 kg

DRUGS (2)
  1. METHOTREXATE [Suspect]
     Active Substance: METHOTREXATE
     Indication: Rheumatic disorder
     Dosage: WK1+2-3TABL, WK2+3-6TABL, WK4+5-10TABL; BRAND NAME NOT SPECIFIED
     Route: 065
     Dates: start: 20240730
  2. APIXABAN [Concomitant]
     Active Substance: APIXABAN
     Indication: Product used for unknown indication
     Dosage: ELIQUIS TABLET FILM COVER 5MG
     Route: 065

REACTIONS (1)
  - Thrombosis [Recovering/Resolving]
